FAERS Safety Report 10362117 (Version 5)
Quarter: 2015Q1

REPORT INFORMATION
  Report Type: Spontaneous
  Country: US (occurrence: US)
  Receive Date: 20140805
  Receipt Date: 20150311
  Transmission Date: 20150720
  Serious: Yes (Hospitalization)
  Sender: FDA-Public Use
  Company Number: US-BAYER-2014-114548

PATIENT
  Age: 27 Year
  Sex: Female
  Weight: 61.22 kg

DRUGS (2)
  1. MIRENA [Suspect]
     Active Substance: LEVONORGESTREL
     Indication: CONTRACEPTION
     Dosage: 20 MCG/24HR, CONT
     Route: 015
     Dates: start: 20090706, end: 20130723
  2. PROMETHAZINE DM [Concomitant]
     Active Substance: DEXTROMETHORPHAN HYDROBROMIDE\PROMETHAZINE HYDROCHLORIDE

REACTIONS (15)
  - Bladder perforation [None]
  - Injury [None]
  - Anxiety [None]
  - Device difficult to use [None]
  - Bladder spasm [None]
  - Dyspnoea [None]
  - Dyspareunia [Not Recovered/Not Resolved]
  - Dysuria [None]
  - Bladder injury [None]
  - Procedural pain [None]
  - Abdominal pain lower [None]
  - Device breakage [None]
  - Complication of device removal [None]
  - Pain in extremity [None]
  - Uterine perforation [None]

NARRATIVE: CASE EVENT DATE: 20130418
